FAERS Safety Report 6231587-4 (Version None)
Quarter: 2009Q2

REPORT INFORMATION
  Report Type: 
  Country: None (occurrence: None)
  Receive Date: 20090616
  Receipt Date: 20090604
  Transmission Date: 20091009
  Serious: Yes (Hospitalization)
  Sender: FDA-Public Use
  Company Number: US-AMGEN-COG346791

PATIENT
  Sex: Female
  Weight: 72.6 kg

DRUGS (7)
  1. ENBREL [Suspect]
     Indication: RHEUMATOID ARTHRITIS
     Route: 058
     Dates: start: 20081101
  2. PLAQUENIL [Concomitant]
     Route: 048
  3. METHOTREXATE [Concomitant]
     Route: 048
  4. PREDNISOLONE [Concomitant]
  5. FOLIC ACID [Concomitant]
  6. PYRIDOXINE [Concomitant]
  7. VITAMIN D [Concomitant]

REACTIONS (2)
  - CHOLELITHIASIS [None]
  - UMBILICAL HERNIA [None]
